FAERS Safety Report 25835311 (Version 1)
Quarter: 2025Q3

REPORT INFORMATION
  Report Type: Spontaneous
  Country: VN (occurrence: VN)
  Receive Date: 20250923
  Receipt Date: 20250923
  Transmission Date: 20251020
  Serious: Yes (Life-Threatening)
  Sender: SANDOZ
  Company Number: VN-002147023-NVSC2025VN143099

PATIENT
  Age: 61 Year
  Sex: Female

DRUGS (1)
  1. OXALIPLATIN [Suspect]
     Active Substance: OXALIPLATIN
     Indication: Product used for unknown indication
     Route: 065

REACTIONS (2)
  - Fatigue [Recovering/Resolving]
  - Dyspnoea [Recovering/Resolving]
